FAERS Safety Report 5677605-3 (Version None)
Quarter: 2008Q1

REPORT INFORMATION
  Report Type: 
  Country: None (occurrence: None)
  Receive Date: 20080324
  Receipt Date: 20080319
  Transmission Date: 20080703
  Serious: Yes (Death)
  Sender: FDA-Public Use
  Company Number: FR-BRISTOL-MYERS SQUIBB COMPANY-14121354

PATIENT
  Age: 87 Year
  Sex: Female

DRUGS (10)
  1. ELISOR [Suspect]
  2. PREVISCAN [Suspect]
     Dosage: 1 DOSAGE FORM = 1/4 ON EVEN DAY AND 1/2 ON ODD DAY.
  3. ALLOPURINOL [Suspect]
  4. CARDENSIEL [Suspect]
  5. TOPALGIC [Suspect]
  6. ZOLOFT [Suspect]
  7. SOLUPRED [Suspect]
  8. LASILIX [Suspect]
  9. FORLAX [Suspect]
  10. NEXIUM [Suspect]

REACTIONS (3)
  - CEREBRAL HAEMORRHAGE [None]
  - SUBDURAL HAEMATOMA [None]
  - TONIC CLONIC MOVEMENTS [None]
